FAERS Safety Report 18375935 (Version 2)
Quarter: 2021Q3

REPORT INFORMATION
  Report Type: Report from Study
  Country: US (occurrence: US)
  Receive Date: 20201013
  Receipt Date: 20210813
  Transmission Date: 20211014
  Serious: No
  Sender: FDA-Public Use
  Company Number: US-ACADIA PHARMACEUTICALS INC.-ACA-2020-PIM-003072

PATIENT
  Sex: Male

DRUGS (14)
  1. VITAMIN C [Concomitant]
     Active Substance: ASCORBIC ACID
  2. FISH OIL [Concomitant]
     Active Substance: FISH OIL
  3. NOURIANZ [Concomitant]
     Active Substance: ISTRADEFYLLINE
  4. ZINC. [Concomitant]
     Active Substance: ZINC
  5. FLOMAX [Concomitant]
     Active Substance: TAMSULOSIN HYDROCHLORIDE
  6. LASIX [Concomitant]
     Active Substance: FUROSEMIDE
  7. CALCIUM 500+D [Concomitant]
     Active Substance: CALCIUM\VITAMIN D
  8. NUPLAZID [Suspect]
     Active Substance: PIMAVANSERIN TARTRATE
     Dosage: 34 MILLIGRAM, QD, EACH NIGHT
     Route: 048
     Dates: start: 202005
  9. VITAMIN D3 [Concomitant]
     Active Substance: CHOLECALCIFEROL
  10. METOPROLOL. [Concomitant]
     Active Substance: METOPROLOL
  11. ECOTRIN [Concomitant]
     Active Substance: ASPIRIN
  12. NUPLAZID [Suspect]
     Active Substance: PIMAVANSERIN TARTRATE
     Indication: PARKINSON^S DISEASE
     Dosage: 34 MILLIGRAM, QD, EACH NIGHT
     Route: 048
     Dates: start: 202005
  13. FLUDROCORTISONE [Concomitant]
     Active Substance: FLUDROCORTISONE
  14. SEROQUEL [Concomitant]
     Active Substance: QUETIAPINE FUMARATE

REACTIONS (3)
  - Product dose omission issue [Recovered/Resolved]
  - Adverse drug reaction [Unknown]
  - Hallucination [Not Recovered/Not Resolved]
